FAERS Safety Report 8769761 (Version 4)
Quarter: 2013Q2

REPORT INFORMATION
  Report Type: Report from Study
  Country: CA (occurrence: CA)
  Receive Date: 20120905
  Receipt Date: 20130528
  Transmission Date: 20140414
  Serious: Yes (Death, Hospitalization)
  Sender: FDA-Public Use
  Company Number: CA-BRISTOL-MYERS SQUIBB COMPANY-16907859

PATIENT
  Age: 53 Year
  Sex: Female

DRUGS (11)
  1. ORENCIA [Suspect]
     Indication: RHEUMATOID ARTHRITIS
     Dosage: NO OF INF:09, LAST INF:30JUL12?INTERRUPTED ON 27AUG12
     Route: 042
     Dates: start: 20120113
  2. ARAVA [Concomitant]
  3. APO-PREDNISONE [Concomitant]
  4. CALCIUM [Concomitant]
  5. LOPRESSOR [Concomitant]
  6. ALTACE [Concomitant]
  7. ALENDRONATE [Concomitant]
     Dosage: RIVA-ALENDRONATE
  8. METFORMIN [Concomitant]
     Dosage: RIVA-METFORMIN
  9. PLAQUENIL [Concomitant]
  10. CLONIDINE [Concomitant]
     Dosage: TEVA-CLONIDINE
  11. FEMARA [Concomitant]

REACTIONS (4)
  - Breast cancer recurrent [Fatal]
  - Septic shock [Fatal]
  - Febrile neutropenia [Fatal]
  - Renal failure [Unknown]
